FAERS Safety Report 7908440-0 (Version None)
Quarter: 2011Q4

REPORT INFORMATION
  Report Type: 
  Country: None (occurrence: None)
  Receive Date: 20111111
  Receipt Date: 20111101
  Transmission Date: 20120403
  Serious: Yes (Hospitalization)
  Sender: FDA-Public Use
  Company Number: US-JNJFOC-20111100909

PATIENT
  Sex: Male
  Weight: 73.5 kg

DRUGS (1)
  1. INFLIXIMAB, RECOMBINANT [Suspect]
     Indication: CROHN'S DISEASE
     Route: 042
     Dates: start: 20100713

REACTIONS (3)
  - DEHYDRATION [None]
  - CONDITION AGGRAVATED [None]
  - CROHN'S DISEASE [None]
